FAERS Safety Report 8328611-1 (Version None)
Quarter: 2012Q2

REPORT INFORMATION
  Report Type: 
  Country: None (occurrence: None)
  Receive Date: 20120502
  Receipt Date: 20100803
  Transmission Date: 20120825
  Serious: No
  Sender: FDA-Public Use
  Company Number: US-TEVA-2010004070

PATIENT
  Sex: Female
  Weight: 90.346 kg

DRUGS (12)
  1. OMEPRAZOLE [Concomitant]
  2. ATIVAN [Concomitant]
  3. NUVIGIL [Suspect]
     Route: 048
  4. VYTORIN [Concomitant]
  5. NUVIGIL [Suspect]
     Indication: NARCOLEPSY
     Route: 048
  6. REQUIP [Concomitant]
  7. PAXIL [Concomitant]
  8. METFORMIN HCL [Concomitant]
  9. AMLODIPINE [Concomitant]
  10. ASPIRIN [Concomitant]
  11. COZAAR [Concomitant]
  12. DETROL [Concomitant]

REACTIONS (2)
  - DRY MOUTH [None]
  - BRUXISM [None]
